FAERS Safety Report 8789123 (Version 1)
Quarter: 2012Q4

REPORT INFORMATION
  Report Type: Spontaneous
  Country: US (occurrence: None)
  Receive Date: 20120904
  Receipt Date: 20120904
  Transmission Date: 20130627
  Serious: Yes (Life-Threatening)
  Sender: FDA-Public Use
  Company Number: 100316-000108

PATIENT
  Sex: Female

DRUGS (4)
  1. PROACTIV RENEWING CLEANSER [Suspect]
     Indication: ACNE
     Route: 061
     Dates: start: 20100218, end: 20100326
  2. PROACTIV REPAIRING TREATMENT [Suspect]
     Route: 061
     Dates: start: 20100228, end: 20100326
  3. PROACTIV REFINING MASK [Suspect]
     Route: 061
     Dates: start: 20100218, end: 20100326
  4. SULFABACTRIM [Concomitant]

REACTIONS (6)
  - Swelling face [None]
  - Urticaria [None]
  - Dyspnoea [None]
  - Pharyngeal oedema [None]
  - Skin reaction [None]
  - Pruritus [None]
